FAERS Safety Report 23697408 (Version 3)
Quarter: 2024Q2

REPORT INFORMATION
  Report Type: Spontaneous
  Country: US (occurrence: US)
  Receive Date: 20240402
  Receipt Date: 20240429
  Transmission Date: 20240716
  Serious: No
  Sender: FDA-Public Use
  Company Number: US-MYLANLABS-2024M1019283

PATIENT
  Age: 56 Year
  Sex: Male
  Weight: 81.65 kg

DRUGS (5)
  1. TYRVAYA [Suspect]
     Active Substance: VARENICLINE TARTRATE
     Indication: Meibomian gland dysfunction
     Dosage: UNK
     Route: 065
     Dates: start: 20231031, end: 20240129
  2. TYRVAYA [Suspect]
     Active Substance: VARENICLINE TARTRATE
     Indication: Dry eye
     Dosage: UNK
     Route: 065
     Dates: start: 20240210, end: 20240220
  3. TYRVAYA [Suspect]
     Active Substance: VARENICLINE TARTRATE
     Dosage: UNK, QD
     Route: 065
  4. TYRVAYA [Suspect]
     Active Substance: VARENICLINE TARTRATE
     Dosage: UNK, BID (1 SPRAY EACH NOSTRIL TWICE A DAY EVERY 12 HOURS)
     Route: 045
     Dates: start: 20240221
  5. XIIDRA [Suspect]
     Active Substance: LIFITEGRAST
     Indication: Product used for unknown indication
     Dosage: UNK
     Route: 065

REACTIONS (21)
  - Dysphagia [Unknown]
  - Paranasal sinus hyposecretion [Unknown]
  - Ear dryness [Unknown]
  - Insomnia [Unknown]
  - Rash [Unknown]
  - Chills [Unknown]
  - Flatulence [Unknown]
  - Abdominal distension [Unknown]
  - Anxiety [Unknown]
  - Gastrooesophageal reflux disease [Not Recovered/Not Resolved]
  - Oesophagitis [Unknown]
  - Withdrawal syndrome [Unknown]
  - Heart rate increased [Unknown]
  - Oesophageal pain [Unknown]
  - Salivary hypersecretion [Not Recovered/Not Resolved]
  - Pollakiuria [Unknown]
  - Nausea [Unknown]
  - Dyspepsia [Unknown]
  - Secretion discharge [Not Recovered/Not Resolved]
  - Abnormal dreams [Unknown]
  - Drug ineffective [Unknown]

NARRATIVE: CASE EVENT DATE: 20240206
